FAERS Safety Report 13544198 (Version 1)
Quarter: 2017Q2

REPORT INFORMATION
  Report Type: Spontaneous
  Country: JP (occurrence: JP)
  Receive Date: 20170515
  Receipt Date: 20170515
  Transmission Date: 20170830
  Serious: Yes (Other)
  Sender: FDA-Public Use
  Company Number: JP-ASTELLAS-2017JP008198AA

PATIENT
  Age: 84 Year
  Sex: Female

DRUGS (1)
  1. BETANIS [Suspect]
     Active Substance: MIRABEGRON
     Indication: HYPERTONIC BLADDER
     Dosage: 25 MG, ONCE DAILY, AFTER SUPPER
     Route: 065

REACTIONS (2)
  - Cardiac pacemaker insertion [Unknown]
  - Viral upper respiratory tract infection [Unknown]
